FAERS Safety Report 16119599 (Version 1)
Quarter: 2019Q1

REPORT INFORMATION
  Report Type: Spontaneous
  Country: FR (occurrence: FR)
  Receive Date: 20190326
  Receipt Date: 20190326
  Transmission Date: 20190418
  Serious: Yes (Death, Hospitalization)
  Sender: FDA-Public Use
  Company Number: FR-009507513-1903FRA009134

PATIENT
  Age: 18640 Day
  Sex: Female

DRUGS (19)
  1. TAVANIC [Concomitant]
     Active Substance: LEVOFLOXACIN
     Indication: FEBRILE BONE MARROW APLASIA
  2. IMIPENEM AND CILASTATIN [Suspect]
     Active Substance: CILASTATIN SODIUM\IMIPENEM
     Dosage: UNK
     Route: 042
     Dates: start: 20040906, end: 20040907
  3. CIFLOX (CIPROFLOXACIN) [Suspect]
     Active Substance: CIPROFLOXACIN
     Dosage: UNK
     Route: 048
     Dates: start: 20040814, end: 20040814
  4. DAUNORUBICIN [Concomitant]
     Active Substance: DAUNORUBICIN
     Indication: ACUTE LEUKAEMIA
     Dates: start: 20040711, end: 20040711
  5. TRIFLUCAN [Concomitant]
     Active Substance: FLUCONAZOLE
     Indication: UNEVALUABLE EVENT
  6. CIFLOX (CIPROFLOXACIN) [Suspect]
     Active Substance: CIPROFLOXACIN
     Indication: PYREXIA
     Dosage: UNK
     Dates: start: 2004, end: 2004
  7. NOVANTRONE [Concomitant]
     Active Substance: MITOXANTRONE HYDROCHLORIDE
     Indication: ACUTE LEUKAEMIA
     Dates: start: 20040711, end: 20040711
  8. INNOHEP [Concomitant]
     Active Substance: TINZAPARIN SODIUM
     Indication: UNEVALUABLE EVENT
  9. LEVOTHYROX [Concomitant]
     Active Substance: LEVOTHYROXINE
     Indication: HYPOTHYROIDISM
  10. ORGAMETRIL [Concomitant]
     Active Substance: LYNESTRENOL
     Indication: UNEVALUABLE EVENT
  11. FORTUM [Suspect]
     Active Substance: CEFTAZIDIME
     Indication: FEBRILE BONE MARROW APLASIA
     Dates: start: 200408, end: 200408
  12. OROKEN [Suspect]
     Active Substance: CEFIXIME
     Indication: PYREXIA
     Dosage: UNK
     Route: 048
     Dates: start: 20040814, end: 20040814
  13. MOPRAL (OMEPRAZOLE) [Concomitant]
     Active Substance: OMEPRAZOLE SODIUM
     Indication: UNEVALUABLE EVENT
  14. VANCOMYCIN [Concomitant]
     Active Substance: VANCOMYCIN
     Indication: FEBRILE BONE MARROW APLASIA
     Dates: end: 20040808
  15. IMIPENEM AND CILASTATIN [Suspect]
     Active Substance: CILASTATIN SODIUM\IMIPENEM
     Dosage: UNK
     Route: 042
     Dates: end: 20040808
  16. ARACYTINE [Concomitant]
     Active Substance: CYTARABINE
     Indication: ACUTE LEUKAEMIA
     Dates: start: 20040711, end: 20040711
  17. VINCRISTINE [Concomitant]
     Active Substance: VINCRISTINE
     Indication: ACUTE LEUKAEMIA
     Dates: start: 20040711, end: 20040711
  18. ZELITREX [Concomitant]
     Active Substance: VALACYCLOVIR HYDROCHLORIDE
     Indication: UNEVALUABLE EVENT
  19. AMBISOME [Concomitant]
     Active Substance: AMPHOTERICIN B
     Indication: FEBRILE BONE MARROW APLASIA
     Dates: end: 20040808

REACTIONS (11)
  - Drug reaction with eosinophilia and systemic symptoms [Fatal]
  - Acute kidney injury [Fatal]
  - Acute kidney injury [Fatal]
  - Hepatic enzyme increased [Fatal]
  - Shock [Fatal]
  - Multiple organ dysfunction syndrome [Fatal]
  - Eosinophilia [Fatal]
  - General physical health deterioration [Fatal]
  - Pyrexia [Fatal]
  - Diarrhoea [Fatal]
  - Dermatitis exfoliative generalised [Fatal]

NARRATIVE: CASE EVENT DATE: 20040814
